FAERS Safety Report 6371081-3 (Version None)
Quarter: 2009Q3

REPORT INFORMATION
  Report Type: 
  Country: None (occurrence: None)
  Receive Date: 20090923
  Receipt Date: 20090911
  Transmission Date: 20100115
  Serious: Yes (Other)
  Sender: FDA-Public Use
  Company Number: PHHY2009BR39116

PATIENT
  Age: 63 Year
  Sex: Male
  Weight: 100 kg

DRUGS (5)
  1. DIOVAN AMLO FIX [Suspect]
     Indication: HYPERTENSION
     Dosage: 1 TABLET (160/5 MG) DAILY
     Dates: start: 20090101
  2. DIOVAN AMLO FIX [Suspect]
     Dosage: HALF TABLET (320/10 MG) DAILY
  3. SELOZOK [Concomitant]
     Indication: HYPERTENSION
     Dosage: 50 MG, QD (AFTER BREAKFAST)
  4. NATRILIX - SLOW RELEASE [Concomitant]
     Indication: HYPERTENSION
     Dosage: 2.5 MG, QD (AFTER BREAKFAST)
  5. DIET [Concomitant]

REACTIONS (1)
  - WEIGHT DECREASED [None]
